FAERS Safety Report 23924915 (Version 1)
Quarter: 2024Q2

REPORT INFORMATION
  Report Type: Spontaneous
  Country: ES (occurrence: ES)
  Receive Date: 20240531
  Receipt Date: 20240531
  Transmission Date: 20240716
  Serious: Yes (Hospitalization, Other)
  Sender: FDA-Public Use
  Company Number: ES-SUN PHARMACEUTICAL INDUSTRIES LTD-2024R1-449314

PATIENT
  Age: 74 Year
  Sex: Female

DRUGS (2)
  1. CARBOPLATIN [Suspect]
     Active Substance: CARBOPLATIN
     Indication: Oropharyngeal cancer
     Dosage: UNK
     Route: 065
  2. PACLITAXEL [Suspect]
     Active Substance: PACLITAXEL
     Indication: Oropharyngeal cancer
     Dosage: UNK
     Route: 065

REACTIONS (7)
  - Eye disorder [Unknown]
  - Leukocytosis [Unknown]
  - Neutrophilia [Unknown]
  - C-reactive protein increased [Unknown]
  - Thrombophlebitis [Unknown]
  - Hypokalaemia [Unknown]
  - Renal tubular disorder [Unknown]
